FAERS Safety Report 6691329-5 (Version None)
Quarter: 2010Q2

REPORT INFORMATION
  Report Type: 
  Country: None (occurrence: None)
  Receive Date: 20100422
  Receipt Date: 20100413
  Transmission Date: 20101027
  Serious: Yes (Other)
  Sender: FDA-Public Use
  Company Number: US-JNJFOC-20100403694

PATIENT
  Sex: Male
  Weight: 92.99 kg

DRUGS (9)
  1. DURAGESIC-100 [Suspect]
     Indication: SPINAL FRACTURE
     Route: 062
  2. DURAGESIC-100 [Suspect]
     Route: 062
  3. FENTANYL-100 [Suspect]
     Indication: SPINAL FRACTURE
     Route: 062
  4. DURAGESIC-100 [Suspect]
     Route: 062
  5. ZOLOFT [Suspect]
     Indication: ANXIETY
     Route: 048
  6. ZOLOFT [Suspect]
     Route: 048
  7. SOMA [Concomitant]
     Indication: PAIN
     Route: 048
  8. AMBIEN [Concomitant]
     Indication: SLEEP DISORDER
     Route: 048
  9. SYNTHROID [Concomitant]
     Indication: THYROID DISORDER
     Route: 048

REACTIONS (8)
  - BLOOD CHOLESTEROL INCREASED [None]
  - HYPERTENSION [None]
  - PAIN [None]
  - THERAPEUTIC RESPONSE DECREASED [None]
  - TREATMENT NONCOMPLIANCE [None]
  - TREMOR [None]
  - WEIGHT DECREASED [None]
  - WEIGHT INCREASED [None]
